FAERS Safety Report 18919220 (Version 3)
Quarter: 2021Q1

REPORT INFORMATION
  Report Type: Spontaneous
  Country: US (occurrence: US)
  Receive Date: 20210220
  Receipt Date: 20210326
  Transmission Date: 20210420
  Serious: No
  Sender: FDA-Public Use
  Company Number: US-SA-2021SA050125

PATIENT
  Sex: Male

DRUGS (1)
  1. ALLEGRA?D [Suspect]
     Active Substance: FEXOFENADINE HYDROCHLORIDE\PSEUDOEPHEDRINE HYDROCHLORIDE
     Indication: HYPERSENSITIVITY
     Dosage: ALLEGRA?D 12 HOUR 60 MG+120 MG EXTENDED RELEASE TABLET
     Dates: start: 2007

REACTIONS (2)
  - Drug ineffective [Unknown]
  - Product quality issue [Unknown]
